FAERS Safety Report 7218583-5 (Version None)
Quarter: 2011Q1

REPORT INFORMATION
  Report Type: 
  Country: None (occurrence: None)
  Receive Date: 20110110
  Receipt Date: 20110107
  Transmission Date: 20110831
  Serious: Yes (Other)
  Sender: FDA-Public Use
  Company Number: US-AMGEN-USASP2010012390

PATIENT

DRUGS (20)
  1. ENTOCORT EC [Concomitant]
     Indication: GRAFT VERSUS HOST DISEASE
  2. HYDROCHLOROTHIAZIDE [Concomitant]
  3. LISINOPRIL [Concomitant]
     Indication: BLOOD PRESSURE
  4. MAG-OX [Concomitant]
     Indication: MEDICAL DIET
  5. PROGRAF [Concomitant]
     Indication: GRAFT VERSUS HOST DISEASE
  6. NOVOLIN                            /00030501/ [Concomitant]
  7. CORTICOSTEROIDS [Concomitant]
     Indication: IDIOPATHIC THROMBOCYTOPENIC PURPURA
  8. BACTRIM [Concomitant]
     Indication: PROPHYLAXIS
  9. VALTREX [Concomitant]
  10. COMPAZINE [Concomitant]
     Indication: PROPHYLAXIS
  11. LORTAB [Concomitant]
     Indication: ANALGESIC THERAPY
  12. PRILOSEC [Concomitant]
     Indication: PROPHYLAXIS
  13. FOLIC ACID [Concomitant]
     Indication: MEDICAL DIET
  14. VFEND [Concomitant]
     Indication: FUNGAL INFECTION
  15. NPLATE [Suspect]
     Indication: IDIOPATHIC THROMBOCYTOPENIC PURPURA
     Dosage: 500 A?G, QWK
     Route: 058
     Dates: start: 20101001, end: 20101028
  16. AVELOX [Concomitant]
     Indication: PROPHYLAXIS
  17. VALCYTE [Concomitant]
     Indication: PROPHYLAXIS
  18. MEDROL [Concomitant]
     Indication: GRAFT VERSUS HOST DISEASE
  19. AMBIEN [Concomitant]
     Indication: INSOMNIA
  20. NOVOLOG [Concomitant]

REACTIONS (1)
  - DRUG INEFFECTIVE [None]
